FAERS Safety Report 21267912 (Version 2)
Quarter: 2022Q3

REPORT INFORMATION
  Report Type: Report from Study
  Country: AU (occurrence: AU)
  Receive Date: 20220829
  Receipt Date: 20220908
  Transmission Date: 20221027
  Serious: Yes (Death, Hospitalization)
  Sender: FDA-Public Use
  Company Number: AU-Vifor (International) Inc.-VIT-2022-05967

PATIENT
  Age: 44 Year
  Sex: Female

DRUGS (1)
  1. VELTASSA [Suspect]
     Active Substance: PATIROMER
     Indication: Hyperkalaemia
     Route: 048
     Dates: start: 20210722, end: 20210819

REACTIONS (2)
  - Sepsis [Fatal]
  - Urinary tract infection [Fatal]
